FAERS Safety Report 6967067-8 (Version None)
Quarter: 2010Q3

REPORT INFORMATION
  Report Type: 
  Country: None (occurrence: None)
  Receive Date: 20100907
  Receipt Date: 20100823
  Transmission Date: 20110219
  Serious: Yes (Hospitalization, Other)
  Sender: FDA-Public Use
  Company Number: US-ELI_LILLY_AND_COMPANY-US201006004475

PATIENT
  Sex: Female

DRUGS (4)
  1. FORTEO [Suspect]
     Indication: OSTEOPOROSIS
     Dosage: 20 UG, DAILY (1/D)
  2. ANTIHYPERTENSIVES [Concomitant]
  3. VITAMIN D [Concomitant]
  4. PREDNISONE [Concomitant]

REACTIONS (4)
  - HYPERTENSION [None]
  - PNEUMONIA [None]
  - PULMONARY FIBROSIS [None]
  - SINUSITIS [None]
